FAERS Safety Report 16358239 (Version 1)
Quarter: 2019Q2

REPORT INFORMATION
  Report Type: Spontaneous
  Country: SE (occurrence: SE)
  Receive Date: 20190527
  Receipt Date: 20190527
  Transmission Date: 20190711
  Serious: Yes (Other)
  Sender: FDA-Public Use
  Company Number: SE-ELI_LILLY_AND_COMPANY-SE201905010398

PATIENT
  Age: 67 Year
  Sex: Female

DRUGS (1)
  1. OLUMIANT [Suspect]
     Active Substance: BARICITINIB
     Indication: ARTHRITIS
     Route: 048
     Dates: start: 20180401, end: 20180731

REACTIONS (5)
  - Off label use [Unknown]
  - Epistaxis [Recovered/Resolved]
  - Cough [Recovered/Resolved]
  - Peripheral swelling [Recovered/Resolved]
  - Herpes zoster [Recovered/Resolved]

NARRATIVE: CASE EVENT DATE: 201807
